FAERS Safety Report 10372817 (Version 1)
Quarter: 2014Q3

REPORT INFORMATION
  Report Type: Spontaneous
  Country: IT (occurrence: IT)
  Receive Date: 20140808
  Receipt Date: 20140808
  Transmission Date: 20150326
  Serious: Yes (Other)
  Sender: FDA-Public Use
  Company Number: IT-ACTAVIS-2013-25830

PATIENT
  Age: 46 Year
  Sex: Male

DRUGS (2)
  1. DOCETAXEL ACTAVIS [Suspect]
     Active Substance: DOCETAXEL
     Indication: TONSIL CANCER
     Dosage: 100 MG, CYCLICAL
     Route: 042
     Dates: start: 20131125, end: 20131125
  2. DOCETAXEL ACTAVIS [Suspect]
     Active Substance: DOCETAXEL
     Dosage: 100 MG, CYCLICAL
     Route: 042
     Dates: start: 20131125, end: 20131125

REACTIONS (4)
  - Infusion related reaction [Recovered/Resolved]
  - Bradycardia [Recovered/Resolved]
  - Flushing [Recovered/Resolved]
  - Hypotension [Recovered/Resolved]

NARRATIVE: CASE EVENT DATE: 20131125
